FAERS Safety Report 4620862-2 (Version None)
Quarter: 2005Q1

REPORT INFORMATION
  Report Type: 
  Country: None (occurrence: None)
  Receive Date: 20050325
  Receipt Date: 20050315
  Transmission Date: 20050727
  Serious: Yes (Other)
  Sender: FDA-Public Use
  Company Number: HQWYE083603FEB05

PATIENT
  Age: 56 Year
  Sex: Female
  Weight: 61.29 kg

DRUGS (3)
  1. DIAMOX [Suspect]
     Indication: GLAUCOMA
     Dosage: 500 MG
     Dates: start: 19800101
  2. NEPTAZANE [Suspect]
  3. PILOCARPINE (PILOCARPINE) [Concomitant]

REACTIONS (8)
  - BLOOD DISORDER [None]
  - CONDITION AGGRAVATED [None]
  - DRUG INTERACTION [None]
  - GLAUCOMA [None]
  - IMMUNE SYSTEM DISORDER [None]
  - INFLUENZA [None]
  - NIGHT BLINDNESS [None]
  - WHITE BLOOD CELL COUNT DECREASED [None]
